FAERS Safety Report 13595038 (Version 2)
Quarter: 2017Q3

REPORT INFORMATION
  Report Type: Spontaneous
  Country: GR (occurrence: GR)
  Receive Date: 20170531
  Receipt Date: 20170717
  Transmission Date: 20171127
  Serious: Yes (Other)
  Sender: FDA-Public Use
  Company Number: ALCN2017GR003569

PATIENT
  Age: 83 Year
  Sex: Male
  Weight: 76 kg

DRUGS (2)
  1. SIMBRINZA [Suspect]
     Active Substance: BRIMONIDINE TARTRATE\BRINZOLAMIDE
     Indication: OPEN ANGLE GLAUCOMA
     Dosage: 1 GTT, BID
     Route: 047
     Dates: start: 20170420, end: 20170522
  2. XALACOM [Suspect]
     Active Substance: LATANOPROST\TIMOLOL MALEATE
     Indication: GLAUCOMA
     Dosage: 1 GTT, QD
     Route: 047
     Dates: start: 2009

REACTIONS (14)
  - Drug hypersensitivity [Unknown]
  - Eye pain [Unknown]
  - Blepharitis [Unknown]
  - Ocular surface disease [Unknown]
  - Erythema of eyelid [Unknown]
  - Intraocular pressure increased [Unknown]
  - Retinal disorder [Unknown]
  - Age-related macular degeneration [Unknown]
  - Visual acuity reduced [Unknown]
  - Foreign body sensation in eyes [Unknown]
  - Ocular hyperaemia [Unknown]
  - Punctate keratitis [Unknown]
  - Eyelid oedema [Unknown]
  - Conjunctival hyperaemia [Unknown]
